FAERS Safety Report 5849014-5 (Version None)
Quarter: 2008Q3

REPORT INFORMATION
  Report Type: 
  Country: None (occurrence: None)
  Receive Date: 20080815
  Receipt Date: 20080801
  Transmission Date: 20090109
  Serious: Yes (Disabling)
  Sender: FDA-Public Use
  Company Number: DSA_32250_2008

PATIENT
  Age: 70 Year
  Sex: Male

DRUGS (10)
  1. ENALAPRIL MALEATE [Suspect]
     Indication: DRUG USE FOR UNKNOWN INDICATION
     Dosage: (20 MG /DAILY ORAL)
     Route: 048
     Dates: start: 20020427
  2. ALLOPURINOL [Suspect]
     Indication: GOUT
     Dosage: (100 MG /DAILY ORAL)
     Route: 048
     Dates: start: 20060823
  3. SODIUM CARBONATE /00049401/ [Concomitant]
  4. SODIUM FLUORIDE [Concomitant]
  5. ATORVASTATIN CALCIUM [Concomitant]
  6. COLECALCIFEROL [Concomitant]
  7. CYCLOSPORINE [Concomitant]
  8. MYCOPHENOLATE MOFETIL [Concomitant]
  9. NYSTATIN [Concomitant]
  10. ARANESP [Concomitant]

REACTIONS (2)
  - ANAEMIA MACROCYTIC [None]
  - APLASIA PURE RED CELL [None]
